FAERS Safety Report 7762092-1 (Version None)
Quarter: 2011Q3

REPORT INFORMATION
  Report Type: 
  Country: None (occurrence: None)
  Receive Date: 20110920
  Receipt Date: 20110920
  Transmission Date: 20111222
  Serious: Yes (Death, Life-Threatening, Hospitalization, Disabling, Congenital Anomaly, Other)
  Sender: FDA-Public Use
  Company Number: None

PATIENT
  Age: 73 Year
  Sex: Female
  Weight: 55.791 kg

DRUGS (1)
  1. CIPROFLOXACIN [Suspect]
     Indication: GASTROINTESTINAL INFECTION
     Dosage: 1 TABLET
     Route: 048
     Dates: start: 20110818, end: 20110823

REACTIONS (8)
  - ANXIETY [None]
  - READING DISORDER [None]
  - DIZZINESS [None]
  - TREMOR [None]
  - DIARRHOEA [None]
  - RESTLESSNESS [None]
  - ABDOMINAL DISCOMFORT [None]
  - ABASIA [None]
